FAERS Safety Report 4298784-9 (Version None)
Quarter: 2004Q1

REPORT INFORMATION
  Report Type: 
  Country: None (occurrence: None)
  Receive Date: 20040126
  Receipt Date: 20030715
  Transmission Date: 20041129
  Serious: No
  Sender: FDA-Public Use
  Company Number: USA030947005

PATIENT
  Age: 12 Year

DRUGS (1)
  1. STRATTERA [Suspect]
     Dosage: 1.2 MG/KG/DAY/DAY

REACTIONS (1)
  - DRUG EFFECT DECREASED [None]
